FAERS Safety Report 7057030-3 (Version None)
Quarter: 2010Q4

REPORT INFORMATION
  Report Type: 
  Country: None (occurrence: None)
  Receive Date: 20101022
  Receipt Date: 20101011
  Transmission Date: 20110411
  Serious: Yes (Other)
  Sender: FDA-Public Use
  Company Number: US-BAYER-201036781NA

PATIENT
  Age: 30 Year
  Sex: Female

DRUGS (4)
  1. MIRENA [Suspect]
     Indication: CONTRACEPTION
     Dosage: FREQUENCY: CONTINUOUS
     Route: 015
     Dates: start: 20100101, end: 20101008
  2. TRAMADOL [Concomitant]
     Indication: INTERVERTEBRAL DISC PROTRUSION
     Dates: start: 20030101
  3. CYMBALTA [Concomitant]
     Indication: ANXIETY
  4. AMBIEN [Concomitant]

REACTIONS (1)
  - GRAND MAL CONVULSION [None]
